FAERS Safety Report 10667294 (Version 1)
Quarter: 2014Q4

REPORT INFORMATION
  Report Type: Spontaneous
  Country: AU (occurrence: AU)
  Receive Date: 20141222
  Receipt Date: 20141222
  Transmission Date: 20150529
  Serious: Yes (Death, Hospitalization)
  Sender: FDA-Public Use
  Company Number: PHHY2014AU165596

PATIENT
  Age: 72 Year
  Sex: Male

DRUGS (2)
  1. LETROZOLE. [Suspect]
     Active Substance: LETROZOLE
     Indication: LUNG ADENOCARCINOMA STAGE IV
     Route: 065
  2. EVEROLIMUS [Suspect]
     Active Substance: EVEROLIMUS
     Indication: LUNG ADENOCARCINOMA STAGE IV
     Dosage: 10 MG, QD
     Route: 048

REACTIONS (16)
  - Pulmonary hypertension [Fatal]
  - Pulmonary alveolar haemorrhage [Fatal]
  - Arterial thrombosis [Fatal]
  - Malignant neoplasm progression [Unknown]
  - Dyspnoea [Unknown]
  - Depressed level of consciousness [Unknown]
  - Pulmonary veno-occlusive disease [Fatal]
  - Alveolitis [Unknown]
  - Haemoglobin decreased [Unknown]
  - Chest pain [Unknown]
  - Abdominal pain upper [Unknown]
  - Pulmonary haemorrhage [Unknown]
  - Pneumonia [Unknown]
  - General physical health deterioration [Unknown]
  - Haemoptysis [Unknown]
  - Pulmonary infarction [Fatal]
